FAERS Safety Report 6498177-X (Version None)
Quarter: 2009Q4

REPORT INFORMATION
  Report Type: 
  Country: None (occurrence: None)
  Receive Date: 20091215
  Receipt Date: 20091203
  Transmission Date: 20100525
  Serious: Yes (Other)
  Sender: FDA-Public Use
  Company Number: US-ELI_LILLY_AND_COMPANY-US200911002854

PATIENT
  Sex: Female

DRUGS (13)
  1. CYMBALTA [Suspect]
     Indication: DEPRESSION
     Dosage: 1 D/F, DAILY (1/D)
     Dates: start: 20080926, end: 20090107
  2. CYMBALTA [Suspect]
     Dosage: 1 D/F, DAILY (1/D)
  3. CYMBALTA [Suspect]
     Dosage: 1 D/F, UNK
  4. ELAVIL [Concomitant]
     Dosage: 1 D/F, UNK
  5. XANAX [Concomitant]
     Indication: DEPRESSION
     Dosage: 1 D/F, UNK
  6. MAGNESIUM [Concomitant]
     Dosage: 1 D/F, UNK
  7. DILAUDID [Concomitant]
     Indication: PAIN
     Dosage: 8 MG, AS NEEDED
  8. KADIAN [Concomitant]
     Dosage: 1 D/F, UNK
  9. KADIAN [Concomitant]
     Dosage: 30 MG, UNK
  10. SPIRONOLACTONE [Concomitant]
     Indication: OEDEMA PERIPHERAL
     Dosage: 50 MG, DAILY (1/D)
  11. BUMEX [Concomitant]
     Indication: OEDEMA PERIPHERAL
     Dosage: 2 MG, AS NEEDED
  12. PREDNISONE [Concomitant]
     Indication: LUNG DISORDER
     Dosage: 30 MG, UNK
  13. SKELAXIN [Concomitant]
     Dosage: 800 MG, 3/D

REACTIONS (10)
  - AFFECTIVE DISORDER [None]
  - FALL [None]
  - HYPOKALAEMIA [None]
  - HYPOXIA [None]
  - LOSS OF CONSCIOUSNESS [None]
  - MOUTH INJURY [None]
  - NIGHTMARE [None]
  - RENAL FAILURE [None]
  - SCAR [None]
  - SEDATION [None]
